FAERS Safety Report 11977901 (Version 2)
Quarter: 2016Q1

REPORT INFORMATION
  Report Type: Spontaneous
  Country: US (occurrence: US)
  Receive Date: 20160129
  Receipt Date: 20160209
  Transmission Date: 20160526
  Serious: Yes (Other)
  Sender: FDA-Public Use
  Company Number: US-MEDTRONIC-1047100

PATIENT
  Sex: Female

DRUGS (1)
  1. BACLOFEN UNKNOWN (2000 MCG/ML) [Suspect]
     Active Substance: BACLOFEN
     Indication: MUSCLE SPASTICITY
     Route: 037

REACTIONS (6)
  - Hypotonia [Unknown]
  - Somnolence [None]
  - Device malfunction [None]
  - Muscle spasticity [None]
  - Mass [None]
  - Scoliosis [None]
